FAERS Safety Report 18551630 (Version 5)
Quarter: 2021Q3

REPORT INFORMATION
  Report Type: Report from Study
  Country: US (occurrence: US)
  Receive Date: 20201126
  Receipt Date: 20210917
  Transmission Date: 20211014
  Serious: Yes (Other)
  Sender: FDA-Public Use
  Company Number: NVSC2020US307713

PATIENT
  Age: 39 Year
  Sex: Male

DRUGS (3)
  1. ALEVE [Concomitant]
     Active Substance: NAPROXEN SODIUM
     Indication: PRODUCT USED FOR UNKNOWN INDICATION
     Dosage: UNK
     Route: 065
  2. KESIMPTA [Suspect]
     Active Substance: OFATUMUMAB
     Indication: MULTIPLE SCLEROSIS
     Dosage: UNK
     Route: 058
  3. KESIMPTA [Suspect]
     Active Substance: OFATUMUMAB
     Dosage: 20 MG, QW
     Route: 058
     Dates: start: 20201110

REACTIONS (14)
  - Crying [Unknown]
  - Dysarthria [Unknown]
  - Influenza like illness [Unknown]
  - Hyperhidrosis [Unknown]
  - Gait disturbance [Unknown]
  - Mental disorder [Unknown]
  - Product dose omission issue [Unknown]
  - Tremor [Unknown]
  - Headache [Unknown]
  - Visual impairment [Unknown]
  - Anger [Unknown]
  - Noninfective encephalitis [Not Recovered/Not Resolved]
  - Depression [Unknown]
  - Chills [Unknown]

NARRATIVE: CASE EVENT DATE: 20201110
